FAERS Safety Report 7804421-6 (Version None)
Quarter: 2011Q4

REPORT INFORMATION
  Report Type: 
  Country: None (occurrence: None)
  Receive Date: 20111010
  Receipt Date: 20110927
  Transmission Date: 20120403
  Serious: Yes (Hospitalization)
  Sender: FDA-Public Use
  Company Number: FR-ROCHE-799247

PATIENT
  Sex: Male

DRUGS (2)
  1. BENDAMUSTINE HYDROCHLORIDE [Suspect]
     Indication: LYMPHOMA
     Dosage: FIRST CYCLE, INFUSION.
     Route: 065
     Dates: start: 20110308, end: 20110531
  2. MABTHERA [Suspect]
     Indication: LYMPHOMA
     Dosage: FIRST CYCLE, INFUSION.
     Route: 065
     Dates: start: 20110308, end: 20110531

REACTIONS (1)
  - RESPIRATORY DISORDER [None]
